FAERS Safety Report 5714094-4 (Version None)
Quarter: 2008Q2

REPORT INFORMATION
  Report Type: 
  Country: None (occurrence: None)
  Receive Date: 20080422
  Receipt Date: 20080422
  Transmission Date: 20081010
  Serious: No
  Sender: FDA-Public Use
  Company Number: None

PATIENT
  Age: 33 Year
  Sex: Male
  Weight: 74 kg

DRUGS (1)
  1. OLANZAPINE [Suspect]
     Dosage: 15 MG DAILY PO
     Route: 048

REACTIONS (1)
  - BLOOD TRIGLYCERIDES INCREASED [None]
